FAERS Safety Report 6020603-0 (Version None)
Quarter: 2008Q4

REPORT INFORMATION
  Report Type: 
  Country: None (occurrence: None)
  Receive Date: 20081227
  Receipt Date: 20081219
  Transmission Date: 20090506
  Serious: Yes (Hospitalization)
  Sender: FDA-Public Use
  Company Number: US-JNJFOC-20081205923

PATIENT
  Sex: Female
  Weight: 45.5 kg

DRUGS (37)
  1. DITROPAN XL [Suspect]
     Indication: INCONTINENCE
     Route: 048
  2. VEGF TRAP-EYE [Suspect]
     Indication: MACULAR DEGENERATION
     Dosage: 0.5 MG OR 2.0 MG . 10 DOSES OF VEGF TRAP-EYE OR RANIBIZUMAB INTRAVITREAL
  3. RANIBIZUMAB [Suspect]
     Indication: MACULAR DEGENERATION
     Dosage: 10 DOSES OF VEGF TRAP-EYE OR RANIBIZUMAB INTRAVITREAL
  4. ENSURE [Concomitant]
     Indication: MEDICAL DIET
     Route: 048
  5. ALLEGRA [Concomitant]
     Indication: HYPERSENSITIVITY
     Route: 048
  6. ASPIRIN [Concomitant]
     Indication: ANTICOAGULANT THERAPY
     Route: 048
  7. CELEBREX [Concomitant]
     Indication: PAIN
     Route: 048
  8. BISCODYL [Concomitant]
     Indication: CONSTIPATION
     Dosage: AS NECESSARY
     Route: 054
  9. CEROVITE JR [Concomitant]
     Indication: VITAMIN SUPPLEMENTATION
     Route: 048
  10. DIOVAN [Concomitant]
     Indication: HYPERTENSION
     Route: 048
  11. EVISTA [Concomitant]
     Indication: HORMONE REPLACEMENT THERAPY
     Route: 048
  12. FUROSEMIDE [Concomitant]
     Indication: CARDIAC FAILURE CONGESTIVE
     Route: 048
  13. CALCIUM WITH VITAMIN D [Concomitant]
     Indication: OSTEOPOROSIS
     Route: 048
  14. PROTONIX [Concomitant]
     Indication: GASTROOESOPHAGEAL REFLUX DISEASE
     Route: 048
  15. XOPENEX [Concomitant]
     Indication: CHRONIC OBSTRUCTIVE PULMONARY DISEASE
     Dosage: 1.25MG/ 3 ML
     Route: 055
  16. NORTRIPTYLINE HCL [Concomitant]
     Indication: ANXIETY
     Route: 048
  17. NORTRIPTYLINE HCL [Concomitant]
     Indication: DEPRESSION
     Route: 048
  18. SINGULAIR [Concomitant]
     Indication: CHRONIC OBSTRUCTIVE PULMONARY DISEASE
     Route: 048
  19. MULTIVITAMIN [Concomitant]
     Indication: SUPPLEMENTATION THERAPY
  20. POTASSIUM CHLORIDE [Concomitant]
     Indication: SUPPLEMENTATION THERAPY
     Route: 048
  21. DOCUSATE [Concomitant]
     Indication: CONSTIPATION
     Dosage: PER ORAL , AS NECESSARY
     Route: 048
  22. DOCUSATE [Concomitant]
     Indication: CONSTIPATION PROPHYLAXIS
     Route: 048
  23. BENZONATATE [Concomitant]
     Indication: COUGH
     Route: 048
  24. CITRACEL WITH CALCIUM + VITAMIN D [Concomitant]
     Indication: VITAMIN SUPPLEMENTATION
     Route: 048
  25. LEVAQUIN [Concomitant]
     Indication: ANTIBIOTIC THERAPY
     Route: 048
  26. MIACALCIN [Concomitant]
     Indication: COMPRESSION FRACTURE
     Dosage: 1 SPRAY, 30 DAYS
     Route: 055
  27. ACETAMINOPHEN [Concomitant]
     Indication: HEADACHE
     Route: 048
  28. ACETAMINOPHEN [Concomitant]
     Indication: PYREXIA
     Dosage: PER ORAL, AS NECESSARY
     Route: 048
  29. ACETAMINOPHEN [Concomitant]
     Indication: PAIN
     Dosage: AS NECESSARY
     Route: 048
  30. HYDROCODONE [Concomitant]
     Indication: PAIN
     Dosage: 5/ 500
     Route: 048
  31. IMODIUM [Concomitant]
     Indication: DIARRHOEA
     Dosage: 1-2 TABLETS AS NECESSARY
     Route: 048
  32. MYLANTA [Concomitant]
     Indication: DYSPEPSIA
     Dosage: AS NECESSARY
     Route: 048
  33. TYLENOL (CAPLET) [Concomitant]
     Indication: INSOMNIA
     Dosage: 2 TABLETS AS NECESSARY
     Route: 048
  34. SALINE MIST [Concomitant]
     Indication: NASAL DRYNESS
     Dosage: 1 SPRAY AS NECESSARY
     Route: 055
  35. MILK OF MAGNESIA [Concomitant]
     Indication: CONSTIPATION
     Dosage: AS NECESSARY
     Route: 048
  36. ALBUTEROL [Concomitant]
     Indication: CHRONIC OBSTRUCTIVE PULMONARY DISEASE
     Dosage: 1 PUFF AS NECESSARY
     Route: 055
  37. DIGITEK [Concomitant]
     Indication: CARDIAC FAILURE CONGESTIVE
     Route: 048

REACTIONS (3)
  - CONFUSIONAL STATE [None]
  - PYREXIA [None]
  - SPINAL OSTEOARTHRITIS [None]
